FAERS Safety Report 19492534 (Version 1)
Quarter: 2021Q3

REPORT INFORMATION
  Report Type: Spontaneous
  Country: IT (occurrence: IT)
  Receive Date: 20210705
  Receipt Date: 20210705
  Transmission Date: 20211014
  Serious: Yes (Other)
  Sender: FDA-Public Use
  Company Number: IT-ACCORD-230635

PATIENT
  Age: 72 Year
  Sex: Male
  Weight: 79 kg

DRUGS (1)
  1. OXALIPLATIN. [Suspect]
     Active Substance: OXALIPLATIN
     Indication: ADENOCARCINOMA GASTRIC
     Route: 042
     Dates: start: 20210318, end: 20210610

REACTIONS (3)
  - Diarrhoea [Recovered/Resolved]
  - Cholinergic syndrome [Recovered/Resolved]
  - Off label use [Unknown]

NARRATIVE: CASE EVENT DATE: 20210610
